FAERS Safety Report 5815735-3 (Version None)
Quarter: 2008Q3

REPORT INFORMATION
  Report Type: 
  Country: None (occurrence: None)
  Receive Date: 20080721
  Receipt Date: 20070917
  Transmission Date: 20090109
  Serious: No
  Sender: FDA-Public Use
  Company Number: US-KINGPHARMUSA00001-K200701205

PATIENT

DRUGS (2)
  1. BICILLIN L-A [Suspect]
     Dates: start: 20070907, end: 20070907
  2. ALEVE [Concomitant]
     Dosage: UNK, PRN

REACTIONS (3)
  - DRUG ADMINISTRATION ERROR [None]
  - HAEMORRHAGE [None]
  - SKIN LACERATION [None]
